FAERS Safety Report 6929028 (Version 2)
Quarter: 2020Q3

REPORT INFORMATION
  Report Type: Spontaneous
  Country: GB (occurrence: DE)
  Receive Date: 20090305
  Receipt Date: 20090506
  Transmission Date: 20201104
  Serious: Yes (Other)
  Sender: FDA-Public Use
  Company Number: DE-GENENTECH-278564

PATIENT
  Age: 46 Year
  Sex: Female

DRUGS (6)
  1. DOCETAXEL. [Suspect]
     Active Substance: DOCETAXEL
     Indication: METASTASES TO LIVER
  2. AVASTIN [Suspect]
     Active Substance: BEVACIZUMAB
     Indication: METASTASES TO BONE
     Dosage: 10 MG/M2, UNK
     Route: 042
     Dates: start: 20080228, end: 20080818
  3. AVASTIN [Suspect]
     Active Substance: BEVACIZUMAB
     Indication: METASTASES TO LIVER
     Dosage: 5 MG/M2, UNK
     Route: 042
     Dates: start: 20080821, end: 20090217
  4. DOCETAXEL. [Suspect]
     Active Substance: DOCETAXEL
     Indication: METASTASES TO BONE
     Dosage: 35 MG/M2, UNK
     Route: 042
     Dates: start: 20080228, end: 20080818
  5. IBANDRONIC ACID. [Suspect]
     Active Substance: IBANDRONIC ACID
     Indication: METASTASES TO BONE
     Dosage: 6 MG/M2, 1/MONTH
     Route: 042
     Dates: start: 20080228, end: 20081204
  6. IBANDRONIC ACID. [Suspect]
     Active Substance: IBANDRONIC ACID
     Dosage: 50 MG, UNK
     Route: 048
     Dates: start: 20080204

REACTIONS (2)
  - Osteonecrosis [Recovering/Resolving]
  - Lacrimation increased [None]

NARRATIVE: CASE EVENT DATE: 20080813
